FAERS Safety Report 12455886 (Version 1)
Quarter: 2016Q2

REPORT INFORMATION
  Report Type: Spontaneous
  Country: US (occurrence: None)
  Receive Date: 20160609
  Receipt Date: 20160609
  Transmission Date: 20160815
  Serious: Yes (Hospitalization)
  Sender: FDA-Public Use
  Company Number: None

PATIENT
  Age: 29 Year
  Sex: Female

DRUGS (5)
  1. CREON [Concomitant]
     Active Substance: PANCRELIPASE AMYLASE\PANCRELIPASE LIPASE\PANCRELIPASE PROTEASE
  2. AQUADEKS APTALIS [Suspect]
     Active Substance: MINERALS\VITAMINS
     Indication: BRONCHIECTASIS
     Route: 048
     Dates: start: 20131022
  3. HUMULIN NOS [Concomitant]
     Active Substance: INSULIN HUMAN
  4. AZITHROMYCIN ANHYDROUS. [Concomitant]
     Active Substance: AZITHROMYCIN ANHYDROUS
  5. ALBUTEROL 0.00831 NEPHRON [Suspect]
     Active Substance: ALBUTEROL
     Indication: CYSTIC FIBROSIS
     Dosage: 0.00831 TID INHALATION
     Route: 055
     Dates: start: 20130823

REACTIONS (1)
  - Hospitalisation [None]

NARRATIVE: CASE EVENT DATE: 20160524
